FAERS Safety Report 21536134 (Version 1)
Quarter: 2022Q4

REPORT INFORMATION
  Report Type: Spontaneous
  Country: ES (occurrence: ES)
  Receive Date: 20221101
  Receipt Date: 20221101
  Transmission Date: 20230113
  Serious: Yes (Hospitalization)
  Sender: FDA-Public Use
  Company Number: ES-RECORDATI-2022005042

PATIENT
  Sex: Male

DRUGS (3)
  1. CARIPRAZINE HYDROCHLORIDE [Suspect]
     Active Substance: CARIPRAZINE HYDROCHLORIDE
     Indication: Bipolar I disorder
     Dosage: 4.5 MG, QD
     Route: 048
     Dates: start: 20220922, end: 20221007
  2. VALPROATE SODIUM [Concomitant]
     Active Substance: VALPROATE SODIUM
     Indication: Product used for unknown indication
     Dosage: 1000 MG, QD (STARTING BEFORE 2010)
  3. QUETIAPINE [Concomitant]
     Active Substance: QUETIAPINE
     Indication: Product used for unknown indication
     Route: 048

REACTIONS (3)
  - Personality disorder [Recovering/Resolving]
  - Psychomotor hyperactivity [Unknown]
  - Off label use [Unknown]

NARRATIVE: CASE EVENT DATE: 20220922
